FAERS Safety Report 6528187-5 (Version None)
Quarter: 2010Q1

REPORT INFORMATION
  Report Type: 
  Country: None (occurrence: None)
  Receive Date: 20100106
  Receipt Date: 20091228
  Transmission Date: 20100710
  Serious: Yes (Hospitalization)
  Sender: FDA-Public Use
  Company Number: JP-JNJFOC-20091103628

PATIENT
  Sex: Female

DRUGS (11)
  1. REMICADE [Suspect]
     Route: 042
     Dates: start: 20090306, end: 20090821
  2. REMICADE [Suspect]
     Indication: RHEUMATOID ARTHRITIS
     Route: 042
     Dates: start: 20090306, end: 20090821
  3. RHEUMATREX [Suspect]
     Indication: RHEUMATOID ARTHRITIS
     Route: 048
  4. AZATHIOPRINE [Concomitant]
     Route: 048
  5. MOHRUS TAPE [Concomitant]
     Indication: RHEUMATOID ARTHRITIS
  6. FOLIAMIN [Concomitant]
     Indication: PROPHYLAXIS
  7. ISCOTIN [Concomitant]
     Indication: PROPHYLAXIS
     Route: 048
  8. PYDOXAL [Concomitant]
     Indication: PROPHYLAXIS
     Route: 048
  9. RELIFEN [Concomitant]
     Indication: RHEUMATOID ARTHRITIS
     Route: 048
  10. MUCOSTA [Concomitant]
     Indication: PROPHYLAXIS
     Route: 048
  11. LIMETHASON [Concomitant]
     Route: 042

REACTIONS (1)
  - PNEUMOCYSTIS JIROVECI PNEUMONIA [None]
